FAERS Safety Report 16690136 (Version 2)
Quarter: 2019Q3

REPORT INFORMATION
  Report Type: Report from Study
  Country: LV (occurrence: LV)
  Receive Date: 20190809
  Receipt Date: 20190813
  Transmission Date: 20191004
  Serious: Yes (Death, Other)
  Sender: FDA-Public Use
  Company Number: LV-SEATTLE GENETICS-2019SGN02780

PATIENT
  Age: 19 Year
  Sex: Female
  Weight: 77 kg

DRUGS (3)
  1. METOPROLOL                         /00376902/ [Concomitant]
     Active Substance: METOPROLOL TARTRATE
     Dosage: 50 MILLIGRAM
     Route: 042
  2. BRENTUXIMAB VEDOTIN-MPI [Suspect]
     Active Substance: BRENTUXIMAB VEDOTIN
     Dosage: 100 MG, UNK
     Route: 042
     Dates: start: 20190605, end: 20190801
  3. ANAPRILIN [Concomitant]
     Active Substance: PROPRANOLOL HYDROCHLORIDE
     Indication: TACHYCARDIA
     Dosage: 20 MILLIGRAM
     Route: 048
     Dates: start: 20190607, end: 20190806

REACTIONS (2)
  - Diffuse large B-cell lymphoma [Fatal]
  - Off label use [Unknown]

NARRATIVE: CASE EVENT DATE: 20190605
